FAERS Safety Report 17760639 (Version 1)
Quarter: 2020Q2

REPORT INFORMATION
  Report Type: Report from Study
  Country: IT (occurrence: IT)
  Receive Date: 20200508
  Receipt Date: 20200508
  Transmission Date: 20200714
  Serious: Yes (Other)
  Sender: FDA-Public Use
  Company Number: IT-PFIZER INC-2020183895

PATIENT
  Age: 68 Year
  Sex: Female

DRUGS (5)
  1. OXYCODONE [Interacting]
     Active Substance: OXYCODONE
     Dosage: UNK
  2. BEDROCAN [Interacting]
     Active Substance: CANNABIS SATIVA FLOWERING TOP
     Indication: FIBROMYALGIA
     Dosage: 100 MG, DAILY
     Route: 048
  3. PREGABALIN. [Suspect]
     Active Substance: PREGABALIN
     Dosage: UNK
  4. BEDROCAN [Interacting]
     Active Substance: CANNABIS SATIVA FLOWERING TOP
     Indication: PAIN
  5. BEDROCAN [Interacting]
     Active Substance: CANNABIS SATIVA FLOWERING TOP
     Indication: SPINAL STENOSIS

REACTIONS (5)
  - Feeling abnormal [Recovered/Resolved]
  - Hypertension [Recovered/Resolved]
  - Tachyarrhythmia [Recovered/Resolved]
  - Drug interaction [Unknown]
  - Negative thoughts [Recovered/Resolved]
